FAERS Safety Report 7318357-0 (Version None)
Quarter: 2011Q1

REPORT INFORMATION
  Report Type: 
  Country: None (occurrence: None)
  Receive Date: 20110217
  Receipt Date: 20110217
  Transmission Date: 20110831
  Serious: Yes (Life-Threatening, Hospitalization)
  Sender: FDA-Public Use
  Company Number: None

PATIENT
  Age: 73 Year
  Sex: Female
  Weight: 50 kg

DRUGS (2)
  1. BONIVA [Suspect]
     Dosage: BONIVA 150 MG MONTHLY PO
     Route: 048
  2. FOSAMAX [Suspect]
     Indication: OSTEOPOROSIS
     Dosage: FOSAMAX 75 MG WEEKLY PO
     Route: 048

REACTIONS (4)
  - PATHOLOGICAL FRACTURE [None]
  - HIP FRACTURE [None]
  - FEMUR FRACTURE [None]
  - FALL [None]
